FAERS Safety Report 26192013 (Version 1)
Quarter: 2025Q4

REPORT INFORMATION
  Report Type: Spontaneous
  Country: US (occurrence: None)
  Receive Date: 20251223
  Receipt Date: 20251223
  Transmission Date: 20260118
  Serious: Yes (Death)
  Sender: FDA-CTU
  Company Number: None

PATIENT
  Age: 75 Year
  Sex: Male
  Weight: 97 kg

DRUGS (17)
  1. TOCILIZUMAB-AAZG [Suspect]
     Active Substance: TOCILIZUMAB-AAZG
     Indication: Rheumatoid arthritis
     Dosage: 760 MG Q28 DAYS INTRAVENOUS
     Route: 042
     Dates: start: 20250717, end: 20251013
  2. PREDNISONE [Concomitant]
     Active Substance: PREDNISONE
     Dates: start: 20250226, end: 20251016
  3. VANCOMYCIN [Concomitant]
     Active Substance: VANCOMYCIN
     Dates: start: 20251018, end: 20251019
  4. PROTONIX [Concomitant]
     Active Substance: PANTOPRAZOLE SODIUM
     Dates: start: 20251016, end: 20251030
  5. CEFEPIME [Concomitant]
     Active Substance: CEFEPIME HYDROCHLORIDE
     Dates: start: 20251016, end: 20251017
  6. DEXAMETHASONE [Concomitant]
     Active Substance: DEXAMETHASONE
     Dates: start: 20251016, end: 20251017
  7. HYDROCORTISONE [Concomitant]
     Active Substance: HYDROCORTISONE
     Dates: start: 20251017, end: 20251026
  8. MEROPENEM [Concomitant]
     Active Substance: MEROPENEM
     Dates: start: 20251017, end: 20251030
  9. VASOPRESSIN [Concomitant]
     Active Substance: VASOPRESSIN
     Dates: start: 20251017, end: 20251022
  10. PROPOFOL [Concomitant]
     Active Substance: PROPOFOL
     Dates: start: 20251017, end: 20251022
  11. NOREPINEPHRINE [Concomitant]
     Active Substance: NOREPINEPHRINE
     Dates: start: 20251017, end: 20251022
  12. FENTANYL [Concomitant]
     Active Substance: FENTANYL
     Dates: start: 20251017, end: 20251022
  13. PRECEDEX [Concomitant]
     Active Substance: DEXMEDETOMIDINE HYDROCHLORIDE
     Dates: start: 20251022, end: 20251025
  14. AMIODARONE [Concomitant]
     Active Substance: AMIODARONE
     Dates: start: 20251027, end: 20251029
  15. DIGOXIN [Concomitant]
     Active Substance: DIGOXIN
     Dates: start: 20251026, end: 20251026
  16. WELLBUTRIN [Concomitant]
     Active Substance: BUPROPION HYDROCHLORIDE
     Dates: start: 20251027, end: 20251028
  17. HEPARIN [Concomitant]
     Active Substance: HEPARIN SODIUM
     Dates: start: 20251023, end: 20251025

REACTIONS (1)
  - Intestinal perforation [None]

NARRATIVE: CASE EVENT DATE: 20251029
